FAERS Safety Report 6174644-3 (Version None)
Quarter: 2009Q2

REPORT INFORMATION
  Report Type: 
  Country: None (occurrence: None)
  Receive Date: 20090424
  Receipt Date: 20090216
  Transmission Date: 20091009
  Serious: No
  Sender: FDA-Public Use
  Company Number: ALL1-2009-00415

PATIENT
  Age: 41 Year
  Sex: Female
  Weight: 70.3 kg

DRUGS (7)
  1. VYVANSE [Suspect]
     Indication: ATTENTION DEFICIT/HYPERACTIVITY DISORDER
     Dosage: 30 MG, 1X/DAY:QD, ORAL
     Route: 048
     Dates: start: 20090214
  2. ZIAC [Concomitant]
  3. SYNTHROID [Concomitant]
  4. AMBIEN CR [Concomitant]
  5. NORTRIPTYLINE HCL [Concomitant]
  6. TOPAMAX [Concomitant]
  7. LEXAPRO [Concomitant]

REACTIONS (1)
  - FATIGUE [None]
